FAERS Safety Report 21269639 (Version 2)
Quarter: 2022Q3

REPORT INFORMATION
  Report Type: Spontaneous
  Country: CA (occurrence: None)
  Receive Date: 20220830
  Receipt Date: 20220919
  Transmission Date: 20221026
  Serious: Yes (Other)
  Sender: FDA-Public Use
  Company Number: 2022A296989

PATIENT
  Sex: Female

DRUGS (2)
  1. OLAPARIB [Suspect]
     Active Substance: OLAPARIB
     Indication: Ovarian cancer
     Route: 048
  2. NIRAPARIB [Suspect]
     Active Substance: NIRAPARIB
     Route: 065

REACTIONS (2)
  - Skin plaque [Recovering/Resolving]
  - Cross sensitivity reaction [Recovering/Resolving]
